FAERS Safety Report 8283309-3 (Version None)
Quarter: 2012Q2

REPORT INFORMATION
  Report Type: 
  Country: None (occurrence: None)
  Receive Date: 20120413
  Receipt Date: 20120405
  Transmission Date: 20120825
  Serious: Yes (Other)
  Sender: FDA-Public Use
  Company Number: FR-ELI_LILLY_AND_COMPANY-FR201204001663

PATIENT
  Sex: Female

DRUGS (13)
  1. VITAMIN B-12 [Concomitant]
     Dosage: UNK
     Dates: start: 20111109, end: 20111109
  2. ONDANSETRON [Concomitant]
     Dosage: UNK
     Dates: start: 20111117, end: 20111117
  3. GAVISCON                           /00237601/ [Concomitant]
     Dosage: UNK
     Dates: start: 20111229
  4. ALIMTA [Suspect]
     Indication: LUNG ADENOCARCINOMA
     Dosage: 500 MG, UNKNOWN
     Route: 042
     Dates: start: 20111117, end: 20120119
  5. FOLIC ACID [Concomitant]
     Indication: LUNG ADENOCARCINOMA
     Dosage: UNK
     Route: 048
     Dates: start: 20111109, end: 20120202
  6. CHLORPROMAZINE [Concomitant]
     Dosage: UNK
     Dates: start: 20111117, end: 20111117
  7. GRANISETRON [Concomitant]
     Dosage: UNK
     Dates: start: 20111117, end: 20111117
  8. LORAMYC [Concomitant]
     Dosage: UNK
     Dates: start: 20111229
  9. CLORAZEPATE DIPOTASSIUM [Concomitant]
     Dosage: UNK
     Dates: start: 20111117, end: 20111117
  10. ACETAMINOPHEN [Concomitant]
     Dosage: UNK
     Dates: start: 20110501
  11. NEXIUM [Concomitant]
     Dosage: 40 MG, UNKNOWN
     Dates: start: 20110501
  12. METHYLPREDNISOLONE [Concomitant]
     Dosage: UNK
     Dates: start: 20111117, end: 20111117
  13. PREDNISOLONE [Concomitant]
     Dosage: UNK
     Dates: start: 20111116, end: 20111118

REACTIONS (7)
  - ORAL CANDIDIASIS [None]
  - SKIN LESION [None]
  - RASH ERYTHEMATOUS [None]
  - XEROSIS [None]
  - EOSINOPHILIA [None]
  - CHEST PAIN [None]
  - BURN OESOPHAGEAL [None]
